FAERS Safety Report 11862773 (Version 1)
Quarter: 2015Q4

REPORT INFORMATION
  Report Type: Report from Study
  Country: DE (occurrence: DE)
  Receive Date: 20151223
  Receipt Date: 20151223
  Transmission Date: 20160305
  Serious: Yes (Death)
  Sender: FDA-Public Use
  Company Number: DE-MYLANLABS-2015M1046321

PATIENT

DRUGS (1)
  1. METHOTREXATE [Suspect]
     Active Substance: METHOTREXATE
     Indication: MEDULLOBLASTOMA
     Route: 050

REACTIONS (3)
  - Areflexia [Fatal]
  - Brain oedema [Fatal]
  - Leukoencephalopathy [Fatal]
